FAERS Safety Report 7399756-8 (Version None)
Quarter: 2011Q1

REPORT INFORMATION
  Report Type: 
  Country: None (occurrence: None)
  Receive Date: 20110330
  Receipt Date: 20110322
  Transmission Date: 20110831
  Serious: Yes (Hospitalization)
  Sender: FDA-Public Use
  Company Number: 2011030099

PATIENT
  Age: 59 Year
  Sex: Female

DRUGS (9)
  1. AMBIEM (ZOLPIDEM) [Concomitant]
  2. OXYCONTIN [Concomitant]
  3. OXYCODONE (OXYCODONE) [Concomitant]
  4. FENTORA [Concomitant]
  5. ONSOLIS [Suspect]
     Indication: NEOPLASM MALIGNANT
     Dosage: SEE IMAGE
     Route: 002
     Dates: start: 20110131
  6. ONSOLIS [Suspect]
     Indication: NEOPLASM MALIGNANT
     Dosage: SEE IMAGE
     Route: 002
     Dates: start: 20100814, end: 20100823
  7. ONSOLIS [Suspect]
     Indication: NEOPLASM MALIGNANT
     Dosage: SEE IMAGE
     Route: 002
     Dates: start: 20100824, end: 20110130
  8. AMITRIPTYLINE (AMITRIPTYLINE) [Concomitant]
  9. GABAPENTIN [Concomitant]

REACTIONS (2)
  - PROCEDURAL PAIN [None]
  - BLADDER OPERATION [None]
